FAERS Safety Report 5693184-9 (Version None)
Quarter: 2008Q2

REPORT INFORMATION
  Report Type: 
  Country: None (occurrence: None)
  Receive Date: 20080403
  Receipt Date: 20080401
  Transmission Date: 20081010
  Serious: Yes (Other)
  Sender: FDA-Public Use
  Company Number: GB-BRISTOL-MYERS SQUIBB COMPANY-14129746

PATIENT
  Age: 51 Year
  Sex: Male
  Weight: 64 kg

DRUGS (6)
  1. PRAVASTATIN SODIUM [Suspect]
     Indication: CARDIOVASCULAR EVENT PROPHYLAXIS
     Dosage: INITIATED WITH 20MG; CHANGED TO 30MG;NOW REDUCED TO 20MG
     Route: 048
     Dates: start: 20000101
  2. ACETYLSALICYLIC ACID SRT [Concomitant]
  3. ATENOLOL [Concomitant]
  4. CANDESARTAN CILEXETIL [Concomitant]
  5. GAVISCON [Concomitant]
  6. TAMSULOSIN HCL [Concomitant]

REACTIONS (1)
  - ORAL MUCOSAL EXFOLIATION [None]
